FAERS Safety Report 8268886 (Version 2)
Quarter: 2013Q2

REPORT INFORMATION
  Report Type: Report from Study
  Country: DE (occurrence: DE)
  Receive Date: 20111130
  Receipt Date: 20130625
  Transmission Date: 20140414
  Serious: Yes (Hospitalization)
  Sender: FDA-Public Use
  Company Number: DE-MPIJNJ-2011-05961

PATIENT
  Sex: 0

DRUGS (1)
  1. VELCADE [Suspect]
     Indication: PLASMA CELL MYELOMA
     Dosage: 1.96 MG, UNK
     Route: 042
     Dates: start: 20111104, end: 20111111

REACTIONS (2)
  - Renal injury [Recovered/Resolved]
  - Postoperative wound infection [Recovered/Resolved]
